FAERS Safety Report 12236011 (Version 2)
Quarter: 2016Q2

REPORT INFORMATION
  Report Type: Spontaneous
  Country: BE (occurrence: BE)
  Receive Date: 20160404
  Receipt Date: 20160526
  Transmission Date: 20160815
  Serious: Yes (Other)
  Sender: FDA-Public Use
  Company Number: BE-BAYER-2016-060213

PATIENT
  Age: 71 Year
  Sex: Male

DRUGS (11)
  1. LEDERTREXATE [Concomitant]
     Active Substance: METHOTREXATE
     Dosage: 3 TABLETS ONCE A WEEK.
     Route: 048
  2. ZOLADEX [Concomitant]
     Active Substance: GOSERELIN ACETATE
     Dosage: ONCE EVERY 3 MONTHS
  3. XOFIGO [Suspect]
     Active Substance: RADIUM RA-223 DICHLORIDE
     Indication: METASTASES TO BONE
  4. ASAFLOW [Concomitant]
     Active Substance: ASPIRIN
     Dosage: 80 MG, QD
  5. PREDNISOLONE. [Concomitant]
     Active Substance: PREDNISOLONE
     Dosage: 5 MG, BID
  6. FOLAVIT [Concomitant]
     Dosage: 4 MG, OW
  7. XTANDI [Concomitant]
     Active Substance: ENZALUTAMIDE
     Dosage: 40 MG, QID, USED IN MEDICAL NEED
  8. FELODIPINE. [Concomitant]
     Active Substance: FELODIPINE
     Dosage: 10 MG, QD
  9. BRILIQUE [Concomitant]
     Active Substance: TICAGRELOR
     Dosage: 90 MG, BID
  10. XOFIGO [Suspect]
     Active Substance: RADIUM RA-223 DICHLORIDE
     Indication: HORMONE-REFRACTORY PROSTATE CANCER
     Dosage: DOSE OF XOFIGO ACCORDING TO WEIGHT (APPROXIMATELY 70 KG)
     Route: 042
     Dates: start: 20151214, end: 20160307
  11. DENOSUMAB [Concomitant]
     Active Substance: DENOSUMAB
     Dosage: 120 MG, Q1MON
     Route: 058

REACTIONS (3)
  - Metastases to liver [None]
  - Disease progression [None]
  - Metastases to lymph nodes [None]

NARRATIVE: CASE EVENT DATE: 20160128
